FAERS Safety Report 5366680-1 (Version None)
Quarter: 2007Q2

REPORT INFORMATION
  Report Type: 
  Country: None (occurrence: None)
  Receive Date: 20070622
  Receipt Date: 20060531
  Transmission Date: 20071010
  Serious: No
  Sender: FDA-Public Use
  Company Number: US-ASTRAZENECA-2006UW10447

PATIENT
  Age: 6 Year
  Sex: Female
  Weight: 23.1 kg

DRUGS (2)
  1. RHINOCORT [Suspect]
     Indication: POSTNASAL DRIP
     Route: 045
  2. ZYRTEC [Concomitant]

REACTIONS (1)
  - POLLAKIURIA [None]
